FAERS Safety Report 8874101 (Version 1)
Quarter: 2012Q4

REPORT INFORMATION
  Report Type: Report from Study
  Country: NL (occurrence: NL)
  Receive Date: 20121031
  Receipt Date: 20121031
  Transmission Date: 20130627
  Serious: Yes (Other)
  Sender: FDA-Public Use
  Company Number: NL-AMGEN-NLDCT2012068672

PATIENT
  Age: 54 Year
  Sex: Female
  Weight: 50 kg

DRUGS (4)
  1. ETANERCEPT [Suspect]
     Indication: PRODUCT USED FOR UNKNOWN INDICATION
     Dosage: 50mg 1x and 25mg 1x per week
     Dates: start: 20091112, end: 20120701
  2. PARACETAMOL [Concomitant]
     Indication: PYREXIA
     Dosage: UNK
     Route: 048
  3. PARACETAMOL [Concomitant]
     Indication: PAIN
     Dosage: UNK UNK, UNK
  4. PARACETAMOL [Concomitant]
     Indication: HEADACHE
     Dosage: UNK UNK, UNK

REACTIONS (1)
  - Lung adenocarcinoma [Recovered/Resolved]
